FAERS Safety Report 7390213-1 (Version None)
Quarter: 2011Q2

REPORT INFORMATION
  Report Type: 
  Country: None (occurrence: None)
  Receive Date: 20110401
  Receipt Date: 20110328
  Transmission Date: 20111010
  Serious: Yes (Hospitalization)
  Sender: FDA-Public Use
  Company Number: JP-ABBOTT-11P-087-0698033-00

PATIENT
  Sex: Male
  Weight: 32 kg

DRUGS (2)
  1. CLARITHROMYCIN [Suspect]
     Indication: RESPIRATORY TRACT INFECTION
     Route: 048
     Dates: start: 20101220, end: 20101224
  2. ACETAMINOPHEN [Concomitant]
     Indication: PYREXIA

REACTIONS (1)
  - PANCYTOPENIA [None]
